FAERS Safety Report 7635878-1 (Version None)
Quarter: 2011Q3

REPORT INFORMATION
  Report Type: 
  Country: None (occurrence: None)
  Receive Date: 20110726
  Receipt Date: 20110714
  Transmission Date: 20111222
  Serious: Yes (Other)
  Sender: FDA-Public Use
  Company Number: US-JNJFOC-20110706907

PATIENT
  Age: 12 Month
  Sex: Female

DRUGS (1)
  1. DESITIN [Suspect]
     Indication: ACCIDENTAL EXPOSURE
     Route: 048

REACTIONS (1)
  - ACCIDENTAL EXPOSURE [None]
